FAERS Safety Report 4519041-9 (Version None)
Quarter: 2004Q4

REPORT INFORMATION
  Report Type: 
  Country: None (occurrence: None)
  Receive Date: 20041201
  Receipt Date: 20041122
  Transmission Date: 20050328
  Serious: Yes (Other)
  Sender: FDA-Public Use
  Company Number: 2004-11-0883

PATIENT

DRUGS (1)
  1. GENTACIN (GENTAMICIN SULFATE) INJECTABLE SOLUTION [Suspect]
     Indication: BLOOD DISORDER

REACTIONS (1)
  - RHABDOMYOLYSIS [None]
